FAERS Safety Report 23183361 (Version 2)
Quarter: 2024Q2

REPORT INFORMATION
  Report Type: Spontaneous
  Country: TR (occurrence: TR)
  Receive Date: 20231114
  Receipt Date: 20240404
  Transmission Date: 20240716
  Serious: Yes (Hospitalization, Other)
  Sender: FDA-Public Use
  Company Number: TR-002147023-NVSC2023TR239454

PATIENT
  Age: 72 Year
  Sex: Female

DRUGS (11)
  1. RIBOCICLIB [Suspect]
     Active Substance: RIBOCICLIB
     Indication: Breast cancer stage IV
     Dosage: 600 MG (FOR 21 DAYS (WITH A 7-DAY BREAK)
     Route: 065
     Dates: start: 20220922, end: 20220926
  2. RIBOCICLIB [Suspect]
     Active Substance: RIBOCICLIB
     Indication: Breast cancer metastatic
     Dosage: 600 MG (FOR 21 DAYS (WITH A 7-DAY BREAK)
     Route: 065
     Dates: start: 20221010, end: 20221014
  3. LETROZOLE [Concomitant]
     Active Substance: LETROZOLE
     Indication: Breast cancer stage IV
     Dosage: 2.5 MG, QD
     Route: 065
     Dates: start: 20220922
  4. LETROZOLE [Concomitant]
     Active Substance: LETROZOLE
     Indication: Breast cancer metastatic
     Route: 065
  5. LETROZOLE [Concomitant]
     Active Substance: LETROZOLE
     Indication: Breast cancer metastatic
  6. CARVEDILOL [Concomitant]
     Active Substance: CARVEDILOL
     Indication: Product used for unknown indication
     Dosage: UNK
     Route: 065
  7. CARVEDILOL [Concomitant]
     Active Substance: CARVEDILOL
     Indication: Product used for unknown indication
     Route: 065
  8. CANDESARTAN CILEXETIL\HYDROCHLOROTHIAZIDE [Concomitant]
     Active Substance: CANDESARTAN CILEXETIL\HYDROCHLOROTHIAZIDE
     Indication: Product used for unknown indication
     Dosage: UNK
     Route: 065
  9. FUROSEMIDE [Concomitant]
     Active Substance: FUROSEMIDE
     Indication: Product used for unknown indication
     Dosage: UNK
     Route: 065
  10. METFORMIN [Concomitant]
     Active Substance: METFORMIN HYDROCHLORIDE
     Indication: Type 2 diabetes mellitus
     Dosage: UNK
     Route: 065
  11. METFORMIN [Concomitant]
     Active Substance: METFORMIN HYDROCHLORIDE
     Route: 065

REACTIONS (2)
  - Hallucination, visual [Recovered/Resolved]
  - Hallucination, visual [Recovered/Resolved]

NARRATIVE: CASE EVENT DATE: 20220925
